FAERS Safety Report 7747178-X (Version None)
Quarter: 2011Q3

REPORT INFORMATION
  Report Type: 
  Country: None (occurrence: None)
  Receive Date: 20110913
  Receipt Date: 20110902
  Transmission Date: 20111222
  Serious: Yes (Other)
  Sender: FDA-Public Use
  Company Number: PR-PFIZER INC-2007085401

PATIENT
  Sex: Female
  Weight: 104.54 kg

DRUGS (11)
  1. CHANTIX [Suspect]
     Dosage: 0.5 MG, 2X/DAY
     Route: 048
     Dates: start: 20070101, end: 20070101
  2. CHANTIX [Suspect]
     Dosage: 1 MG, DAILY
     Route: 048
     Dates: start: 20070101, end: 20071009
  3. GLUCOPHAGE [Concomitant]
     Dosage: UNK
  4. GLUCOTROL [Concomitant]
     Indication: DIABETES MELLITUS
     Dosage: UNK
  5. CHANTIX [Suspect]
     Indication: SMOKING CESSATION THERAPY
     Dosage: 0.5 MG, 1X/DAY
     Route: 048
     Dates: start: 20070801, end: 20070101
  6. NEURONTIN [Concomitant]
     Dosage: UNK
  7. NEXIUM [Concomitant]
     Dosage: UNK
  8. CHANTIX [Suspect]
     Dosage: 1 MG, 2X/DAY
     Route: 048
     Dates: start: 20070101, end: 20070101
  9. ZOCOR [Concomitant]
     Dosage: UNK
  10. VALSARTAN [Concomitant]
     Indication: BLOOD PRESSURE
     Dosage: UNK
  11. KLONOPIN [Concomitant]
     Dosage: UNK

REACTIONS (6)
  - INSOMNIA [None]
  - WEIGHT DECREASED [None]
  - NIGHTMARE [None]
  - DECREASED APPETITE [None]
  - ANGER [None]
  - NAUSEA [None]
